FAERS Safety Report 7931437-1 (Version None)
Quarter: 2011Q4

REPORT INFORMATION
  Report Type: 
  Country: None (occurrence: None)
  Receive Date: 20111121
  Receipt Date: 20111114
  Transmission Date: 20120403
  Serious: Yes (Hospitalization)
  Sender: FDA-Public Use
  Company Number: US-UCBSA-045706

PATIENT
  Age: 34 Year
  Sex: Male

DRUGS (6)
  1. LEVETIRACETAM [Suspect]
     Indication: CONVULSION
     Dosage: DAILY DOSE: 1500 MG
     Route: 048
     Dates: start: 20000117, end: 20030115
  2. CLONAZEPAM [Concomitant]
     Indication: CONVULSION
     Dosage: DAILY DOSE: 2 MG
     Route: 048
     Dates: start: 20010118, end: 20080805
  3. TOPIRAMATE [Concomitant]
     Indication: CONVULSION
  4. LAMICTAL [Concomitant]
     Indication: CONVULSION
     Dosage: DAILY DOSE: 200 MG
     Route: 048
     Dates: start: 19970216
  5. PHENYTOIN [Concomitant]
     Indication: CONVULSION
  6. ZONISAMIDE [Concomitant]
     Indication: CONVULSION

REACTIONS (2)
  - INTENTIONAL SELF-INJURY [None]
  - SUICIDAL IDEATION [None]
